FAERS Safety Report 5378657-0 (Version None)
Quarter: 2007Q3

REPORT INFORMATION
  Report Type: 
  Country: None (occurrence: None)
  Receive Date: 20070702
  Receipt Date: 20070702
  Transmission Date: 20080115
  Serious: Yes (Life-Threatening, Hospitalization, Disabling)
  Sender: FDA-Public Use
  Company Number: None

PATIENT
  Age: 36 Year
  Sex: Male
  Weight: 112.4921 kg

DRUGS (1)
  1. OLANZAPINE 10 MG ELI LILLY AND COMPANY [Suspect]
     Dosage: 10 MG DAILY PO
     Route: 048
     Dates: start: 20070526, end: 20070528

REACTIONS (6)
  - ASPIRATION [None]
  - NEUROLEPTIC MALIGNANT SYNDROME [None]
  - RENAL FAILURE ACUTE [None]
  - RESPIRATORY ACIDOSIS [None]
  - RHABDOMYOLYSIS [None]
  - SYSTEMIC INFLAMMATORY RESPONSE SYNDROME [None]
